FAERS Safety Report 21042900 (Version 1)
Quarter: 2022Q3

REPORT INFORMATION
  Report Type: Other
  Country: JP (occurrence: JP)
  Receive Date: 20220705
  Receipt Date: 20220705
  Transmission Date: 20221027
  Serious: Yes (Hospitalization)
  Sender: FDA-Public Use
  Company Number: JP-CHUGAI-2022009471

PATIENT
  Age: 63 Year
  Sex: Male
  Weight: 53.3 kg

DRUGS (12)
  1. ATEZOLIZUMAB [Suspect]
     Active Substance: ATEZOLIZUMAB
     Indication: Lung adenocarcinoma
     Dosage: 1200 MILLIGRAM, QD
     Route: 041
     Dates: start: 20211222, end: 20211222
  2. ATEZOLIZUMAB [Suspect]
     Active Substance: ATEZOLIZUMAB
     Dosage: 1200 MILLIGRAM, QD
     Route: 041
     Dates: start: 20220126, end: 20220126
  3. ATEZOLIZUMAB [Suspect]
     Active Substance: ATEZOLIZUMAB
     Dosage: 1200 MILLIGRAM, QD
     Route: 041
     Dates: start: 20220307
  4. BEVACIZUMAB [Suspect]
     Active Substance: BEVACIZUMAB
     Indication: Lung adenocarcinoma
     Dosage: 840 MILLIGRAM, QD
     Route: 041
     Dates: start: 20211222, end: 20211222
  5. BEVACIZUMAB [Suspect]
     Active Substance: BEVACIZUMAB
     Dosage: 840 MILLIGRAM, QD
     Route: 041
     Dates: start: 20220126, end: 20220126
  6. BEVACIZUMAB [Suspect]
     Active Substance: BEVACIZUMAB
     Dosage: 840 MILLIGRAM, QD
     Route: 041
     Dates: start: 20220307
  7. CARBOPLATIN [Concomitant]
     Active Substance: CARBOPLATIN
     Indication: Lung adenocarcinoma
     Dosage: 580 MILLIGRAM, QD
     Route: 041
     Dates: start: 20211222, end: 20211222
  8. CARBOPLATIN [Concomitant]
     Active Substance: CARBOPLATIN
     Dosage: 480 MILLIGRAM, QD
     Route: 041
     Dates: start: 20220126, end: 20220126
  9. CARBOPLATIN [Concomitant]
     Active Substance: CARBOPLATIN
     Dosage: 480 MILLIGRAM, QD
     Route: 041
     Dates: start: 20220307
  10. PACLITAXEL [Concomitant]
     Active Substance: PACLITAXEL
     Indication: Lung adenocarcinoma
     Dosage: 330 MILLIGRAM, QD
     Route: 041
     Dates: start: 20211222, end: 20211222
  11. PACLITAXEL [Concomitant]
     Active Substance: PACLITAXEL
     Dosage: 330 MILLIGRAM, QD
     Route: 041
     Dates: start: 20220126, end: 20220126
  12. PACLITAXEL [Concomitant]
     Active Substance: PACLITAXEL
     Dosage: 260 MILLIGRAM, QD
     Route: 041
     Dates: start: 20220307

REACTIONS (3)
  - Hepatic function abnormal [Not Recovered/Not Resolved]
  - Malaise [Recovering/Resolving]
  - Immune system disorder [Unknown]

NARRATIVE: CASE EVENT DATE: 20220120
